FAERS Safety Report 19387940 (Version 1)
Quarter: 2021Q2

REPORT INFORMATION
  Report Type: Spontaneous
  Country: US (occurrence: US)
  Receive Date: 20210607
  Receipt Date: 20210607
  Transmission Date: 20210717
  Serious: Yes (Death)
  Sender: FDA-Public Use
  Company Number: None

PATIENT
  Age: 56 Year
  Sex: Female

DRUGS (7)
  1. ERYTHROMYCIN OIN [Concomitant]
  2. ONDANSETRON [Concomitant]
     Active Substance: ONDANSETRON
  3. CLINDAMYCIN. [Concomitant]
     Active Substance: CLINDAMYCIN
  4. IVERMECTIN. [Concomitant]
     Active Substance: IVERMECTIN
  5. LAPATINIB [Suspect]
     Active Substance: LAPATINIB
     Indication: BREAST CANCER FEMALE
     Route: 048
     Dates: start: 20201124, end: 20210603
  6. GENERALAC [Concomitant]
  7. PROCHLORPER [Concomitant]

REACTIONS (1)
  - Death [None]

NARRATIVE: CASE EVENT DATE: 20210603
